FAERS Safety Report 5593472-0 (Version None)
Quarter: 2008Q1

REPORT INFORMATION
  Report Type: 
  Country: None (occurrence: None)
  Receive Date: 20080116
  Receipt Date: 20080110
  Transmission Date: 20080703
  Serious: Yes (Life-Threatening, Hospitalization)
  Sender: FDA-Public Use
  Company Number: ES-BAYER-200810638GPV

PATIENT
  Age: 65 Year
  Sex: Male

DRUGS (6)
  1. ADIRO 100 MG/ASA [Suspect]
     Indication: ISCHAEMIC CARDIOMYOPATHY
     Dosage: TOTAL DAILY DOSE: 100 MG  UNIT DOSE: 100 MG
     Route: 048
     Dates: start: 19970101
  2. IRBESARTAN [Interacting]
     Indication: RENAL HYPERTENSION
     Route: 048
     Dates: start: 20070921, end: 20071022
  3. CARVEDILOL [Concomitant]
     Indication: ISCHAEMIC CARDIOMYOPATHY
     Route: 048
     Dates: start: 20020101, end: 20071022
  4. VADITON/ SODIUM FLUVASTATN [Concomitant]
     Indication: HYPERLIPIDAEMIA
     Route: 048
     Dates: start: 20050101, end: 20071022
  5. DIANBEN/ METFORMIN [Concomitant]
     Indication: DIABETES MELLITUS
     Route: 048
     Dates: start: 20030101, end: 20071022
  6. CAPOTEN [Concomitant]
     Indication: RENAL HYPERTENSION
     Route: 048
     Dates: start: 19970101, end: 20070921

REACTIONS (4)
  - CARDIOGENIC SHOCK [None]
  - HYPERKALAEMIA [None]
  - RENAL FAILURE ACUTE [None]
  - SINUS BRADYCARDIA [None]
